FAERS Safety Report 20366941 (Version 1)
Quarter: 2022Q1

REPORT INFORMATION
  Report Type: Other
  Country: US (occurrence: US)
  Receive Date: 20220123
  Receipt Date: 20220123
  Transmission Date: 20220424
  Serious: Yes (Disabling)
  Sender: FDA-Public Use
  Company Number: US-BIOGEN-2021BI01082734

PATIENT
  Sex: Male

DRUGS (3)
  1. AMPYRA [Suspect]
     Active Substance: DALFAMPRIDINE
     Indication: Gait disturbance
     Dosage: UNK
     Route: 065
  2. TECFIDERA [Suspect]
     Active Substance: DIMETHYL FUMARATE
     Indication: Multiple sclerosis
     Dosage: 120 MILLIGRAM, BID; STARTING DOSE
     Route: 048
  3. TECFIDERA [Suspect]
     Active Substance: DIMETHYL FUMARATE
     Dosage: 240 MILLIGRAM, BID; MAINTENANCE DOSE
     Route: 048

REACTIONS (3)
  - Disability [Unknown]
  - Musculoskeletal disorder [Not Recovered/Not Resolved]
  - Cognitive disorder [Not Recovered/Not Resolved]

NARRATIVE: CASE EVENT DATE: 20190101
